FAERS Safety Report 15750877 (Version 1)
Quarter: 2018Q4

REPORT INFORMATION
  Report Type: Spontaneous
  Country: AR (occurrence: AR)
  Receive Date: 20181221
  Receipt Date: 20181221
  Transmission Date: 20190205
  Serious: Yes (Hospitalization, Other)
  Sender: FDA-Public Use
  Company Number: AR-HERITAGE PHARMACEUTICALS-2018HTG00468

PATIENT
  Age: 38 Year
  Sex: Female

DRUGS (1)
  1. METHIMAZOLE. [Suspect]
     Active Substance: METHIMAZOLE
     Indication: HYPERTHYROIDISM
     Dosage: 20 MG, 1X/DAY
     Route: 065

REACTIONS (6)
  - Hungry bone syndrome [Recovering/Resolving]
  - Thyrotoxic crisis [Recovered/Resolved]
  - Pseudomonal sepsis [Recovering/Resolving]
  - Neutropenia [Recovering/Resolving]
  - Pulmonary embolism [Recovering/Resolving]
  - Thrombophlebitis [Recovering/Resolving]
